FAERS Safety Report 18658614 (Version 6)
Quarter: 2022Q3

REPORT INFORMATION
  Report Type: Spontaneous
  Country: GB (occurrence: GB)
  Receive Date: 20201224
  Receipt Date: 20220915
  Transmission Date: 20221027
  Serious: Yes (Other)
  Sender: FDA-Public Use
  Company Number: GB-BIOVITRUM-2020GB7877

PATIENT
  Age: 62 Year
  Sex: Female

DRUGS (23)
  1. ORFADIN [Suspect]
     Active Substance: NITISINONE
     Indication: Alkaptonuria
     Dosage: 2 MG
     Dates: start: 2015
  2. ORFADIN [Suspect]
     Active Substance: NITISINONE
     Dates: start: 2016
  3. ORFADIN [Suspect]
     Active Substance: NITISINONE
     Dates: start: 2017
  4. ORFADIN [Suspect]
     Active Substance: NITISINONE
     Dates: start: 2018
  5. LEVOTHYROXINE [Concomitant]
     Active Substance: LEVOTHYROXINE
     Dates: start: 2015
  6. LEVOTHYROXINE [Concomitant]
     Active Substance: LEVOTHYROXINE
     Dates: start: 2016
  7. LEVOTHYROXINE [Concomitant]
     Active Substance: LEVOTHYROXINE
     Dates: start: 2017
  8. CALCIUM CARBONATE [Concomitant]
     Active Substance: CALCIUM CARBONATE
     Dates: start: 2015
  9. FOLIC ACID [Concomitant]
     Active Substance: FOLIC ACID
     Dates: start: 2015
  10. FOLIC ACID [Concomitant]
     Active Substance: FOLIC ACID
     Dosage: 5 MG
     Dates: start: 2016
  11. FOLIC ACID [Concomitant]
     Active Substance: FOLIC ACID
     Dosage: 5 MG
     Dates: start: 2017
  12. FOLIC ACID [Concomitant]
     Active Substance: FOLIC ACID
     Dates: start: 2018
  13. SYMBICORT [Concomitant]
     Active Substance: BUDESONIDE\FORMOTEROL FUMARATE DIHYDRATE
     Dosage: 400 MG
     Dates: start: 2016
  14. SYMBICORT [Concomitant]
     Active Substance: BUDESONIDE\FORMOTEROL FUMARATE DIHYDRATE
     Dosage: 400/12
     Dates: start: 2017
  15. CHOLECALCIFEROL [Concomitant]
     Active Substance: CHOLECALCIFEROL
     Dosage: 800 IU
     Dates: start: 2016
  16. ALENDRONATE SODIUM [Concomitant]
     Active Substance: ALENDRONATE SODIUM
     Dosage: 70 MG
     Dates: start: 2016
  17. CITALOPRAM [Concomitant]
     Active Substance: CITALOPRAM HYDROBROMIDE
     Dates: start: 2016
  18. ZORCLONE [Concomitant]
     Dosage: 3.5 (UNITS NOT REPORTED)
     Dates: start: 2016
  19. OLANZAPINE [Concomitant]
     Active Substance: OLANZAPINE
     Dosage: 2.5 MG
     Dates: start: 2017
  20. OLANZAPINE [Concomitant]
     Active Substance: OLANZAPINE
     Dates: start: 2018
  21. AMITRIPTYLINE [Concomitant]
     Active Substance: AMITRIPTYLINE
     Dates: start: 2018
  22. VITAMIN D NOS [Concomitant]
     Active Substance: VITAMIN D NOS
     Dates: start: 2018
  23. ALBUTEROL [Concomitant]
     Active Substance: ALBUTEROL

REACTIONS (3)
  - Lenticular opacities [Not Recovered/Not Resolved]
  - Cataract [Unknown]
  - Amino acid level increased [Not Recovered/Not Resolved]

NARRATIVE: CASE EVENT DATE: 20150101
